FAERS Safety Report 10103362 (Version 1)
Quarter: 2014Q2

REPORT INFORMATION
  Report Type: Spontaneous
  Country: US (occurrence: US)
  Receive Date: 20140424
  Receipt Date: 20140424
  Transmission Date: 20141212
  Serious: Yes (Hospitalization)
  Sender: FDA-Public Use
  Company Number: US-BRISTOL-MYERS SQUIBB COMPANY-20343091

PATIENT
  Age: 77 Year
  Sex: Female

DRUGS (10)
  1. ELIQUIS [Suspect]
     Dates: start: 201309
  2. TIKOSYN [Concomitant]
  3. METOPROLOL [Concomitant]
  4. NEXIUM [Concomitant]
  5. FISH OIL [Concomitant]
  6. CALCIUM CARBONATE [Concomitant]
  7. MAGNESIUM OXIDE [Concomitant]
  8. EFFEXOR [Concomitant]
  9. LIPITOR [Concomitant]
  10. BABY ASPIRIN [Concomitant]

REACTIONS (1)
  - Subdural haematoma [Recovering/Resolving]
